FAERS Safety Report 5744698-4 (Version None)
Quarter: 2008Q2

REPORT INFORMATION
  Report Type: 
  Country: None (occurrence: None)
  Receive Date: 20080520
  Receipt Date: 20080508
  Transmission Date: 20081010
  Serious: Yes (Hospitalization)
  Sender: FDA-Public Use
  Company Number: BR-GENENTECH-261175

PATIENT
  Age: 30 Year
  Sex: Male

DRUGS (7)
  1. MABTHERA [Suspect]
     Indication: NON-HODGKIN'S LYMPHOMA
     Dates: start: 20070621, end: 20071123
  2. CYCLOPHOSPHAMIDE [Suspect]
     Indication: NON-HODGKIN'S LYMPHOMA
     Dosage: UNK, UNK
     Dates: start: 20070621, end: 20071123
  3. DOXORUBICIN HCL [Suspect]
     Indication: NON-HODGKIN'S LYMPHOMA
     Dosage: UNK, UNK
     Dates: start: 20070621, end: 20071123
  4. PREDNISONE TAB [Suspect]
     Indication: NON-HODGKIN'S LYMPHOMA
     Dosage: UNK, UNK
     Dates: start: 20070621, end: 20071123
  5. VINCRISTINE [Suspect]
     Indication: NON-HODGKIN'S LYMPHOMA
     Dosage: UNK, UNK
     Dates: start: 20070621, end: 20071123
  6. ANALGESIC (UNK INGREDIENTS) [Concomitant]
     Indication: DRUG USE FOR UNKNOWN INDICATION
     Dates: start: 20070101
  7. CEPHALEXIN [Concomitant]
     Indication: PROPHYLAXIS
     Dates: start: 20070101

REACTIONS (5)
  - BRAIN INJURY [None]
  - PARANEOPLASTIC SYNDROME [None]
  - PNEUMONIA [None]
  - TREMOR [None]
  - URINARY TRACT INFECTION [None]
